FAERS Safety Report 9322049 (Version 1)
Quarter: 2013Q2

REPORT INFORMATION
  Report Type: Other
  Country: NL (occurrence: NL)
  Receive Date: 20130531
  Receipt Date: 20130531
  Transmission Date: 20140414
  Serious: Yes (Hospitalization, Other)
  Sender: FDA-Public Use
  Company Number: NL-BRISTOL-MYERS SQUIBB COMPANY-13379235

PATIENT
  Age: 51 Year
  Sex: Female

DRUGS (2)
  1. ABILIFY [Suspect]
     Indication: SCHIZOPHRENIA
     Dosage: INITIAL DOSE:15MG,APPROXIMATELY 2WEEK.
     Route: 065
  2. QUETIAPINE [Concomitant]
     Indication: SCHIZOPHRENIA
     Route: 065

REACTIONS (4)
  - Antipsychotic drug level increased [Recovering/Resolving]
  - Lethargy [Recovering/Resolving]
  - Amnesia [Recovering/Resolving]
  - Neoplasm malignant [Not Recovered/Not Resolved]
